FAERS Safety Report 7000815-X (Version None)
Quarter: 2010Q3

REPORT INFORMATION
  Report Type: 
  Country: None (occurrence: None)
  Receive Date: 20100920
  Receipt Date: 20090930
  Transmission Date: 20110219
  Serious: No
  Sender: FDA-Public Use
  Company Number: US-ASTRAZENECA-2009SE16894

PATIENT
  Sex: Male

DRUGS (1)
  1. SEROQUEL XR [Suspect]
     Route: 048
     Dates: start: 20090915

REACTIONS (4)
  - INSOMNIA [None]
  - NERVOUSNESS [None]
  - PANIC ATTACK [None]
  - RESTLESS LEGS SYNDROME [None]
